FAERS Safety Report 6922543-9 (Version None)
Quarter: 2010Q3

REPORT INFORMATION
  Report Type: 
  Country: None (occurrence: None)
  Receive Date: 20100813
  Receipt Date: 20100805
  Transmission Date: 20110219
  Serious: Yes (Other)
  Sender: FDA-Public Use
  Company Number: IT-TEVA-243931USA

PATIENT
  Age: 43 Year
  Sex: Male

DRUGS (2)
  1. PIMOZIDE TABLETS [Suspect]
     Route: 048
  2. CLOZAPINE [Suspect]

REACTIONS (3)
  - MULTIPLE DRUG OVERDOSE INTENTIONAL [None]
  - SELF INJURIOUS BEHAVIOUR [None]
  - SLUGGISHNESS [None]
